FAERS Safety Report 14185368 (Version 1)
Quarter: 2017Q4

REPORT INFORMATION
  Report Type: Spontaneous
  Country: US (occurrence: US)
  Receive Date: 20171111
  Receipt Date: 20171111
  Transmission Date: 20180321
  Serious: Yes (Disabling)
  Sender: FDA-Public Use
  Company Number: None

PATIENT
  Age: 51 Year
  Sex: Female
  Weight: 67.5 kg

DRUGS (7)
  1. CIPROFLOXIN [Suspect]
     Active Substance: CIPROFLOXACIN
     Indication: URINARY TRACT INFECTION
  2. MULTIVITAMIN [Concomitant]
     Active Substance: VITAMINS
  3. B + D VITAMINS [Concomitant]
  4. MAGNESIUM [Concomitant]
     Active Substance: MAGNESIUM
  5. CALCIUM [Concomitant]
     Active Substance: CALCIUM
  6. SYNTHROID [Concomitant]
     Active Substance: LEVOTHYROXINE SODIUM
  7. TURMERIC [Concomitant]
     Active Substance: HERBALS\TURMERIC

REACTIONS (9)
  - Memory impairment [None]
  - Muscular weakness [None]
  - Pain [None]
  - Paraesthesia [None]
  - Visual field defect [None]
  - Hypoaesthesia [None]
  - Nausea [None]
  - Arthralgia [None]
  - Movement disorder [None]

NARRATIVE: CASE EVENT DATE: 20031111
